FAERS Safety Report 5959528-5 (Version None)
Quarter: 2008Q4

REPORT INFORMATION
  Report Type: 
  Country: None (occurrence: None)
  Receive Date: 20081117
  Receipt Date: 20081106
  Transmission Date: 20090506
  Serious: Yes (Other)
  Sender: FDA-Public Use
  Company Number: 200811AGG00838

PATIENT
  Age: 67 Year
  Sex: Female

DRUGS (2)
  1. AGGRASTAT [Suspect]
     Indication: MYOCARDIAL INFARCTION
     Dosage: (25 MG TOTAL INTRAVENOUS BOLUS), (INTRAVENOUS DRIP)
     Route: 040
     Dates: start: 20081027, end: 20081027
  2. AGGRASTAT [Suspect]
     Indication: MYOCARDIAL INFARCTION
     Dosage: (25 MG TOTAL INTRAVENOUS BOLUS), (INTRAVENOUS DRIP)
     Route: 040
     Dates: start: 20081027, end: 20081028

REACTIONS (3)
  - ACUTE PULMONARY OEDEMA [None]
  - ANAEMIA [None]
  - GASTROINTESTINAL ANGIODYSPLASIA HAEMORRHAGIC [None]
